FAERS Safety Report 10515444 (Version 1)
Quarter: 2014Q4

REPORT INFORMATION
  Report Type: Spontaneous
  Country: US (occurrence: None)
  Receive Date: 20141009
  Receipt Date: 20141009
  Transmission Date: 20150528
  Serious: Yes (Other)
  Sender: FDA-Public Use
  Company Number: HA14-358-AE

PATIENT
  Age: 37 Year
  Sex: Female
  Weight: 56.7 kg

DRUGS (3)
  1. BIRTH CONTROL PILLS [Concomitant]
     Active Substance: UNSPECIFIED INGREDIENT
  2. SMZ / TMP [Suspect]
     Active Substance: SULFAMETHOXAZOLE\TRIMETHOPRIM
     Indication: URINARY TRACT INFECTION
     Dosage: 1 TABLET
     Route: 048
     Dates: start: 20140902, end: 20140909
  3. NITROFURANTOIN. [Concomitant]
     Active Substance: NITROFURANTOIN

REACTIONS (9)
  - Palpitations [None]
  - Hypersensitivity [None]
  - Paraesthesia [None]
  - Vision blurred [None]
  - Tinnitus [None]
  - Nausea [None]
  - Fatigue [None]
  - Dizziness [None]
  - Vertigo [None]

NARRATIVE: CASE EVENT DATE: 20140912
